FAERS Safety Report 7556298-4 (Version None)
Quarter: 2011Q2

REPORT INFORMATION
  Report Type: 
  Country: None (occurrence: None)
  Receive Date: 20110620
  Receipt Date: 20110615
  Transmission Date: 20111010
  Serious: No
  Sender: FDA-Public Use
  Company Number: US-PFIZER INC-2011132105

PATIENT
  Sex: Female

DRUGS (2)
  1. RABEPRAZOLE SODIUM [Suspect]
     Dosage: UNK
  2. SPIRONOLACTONE [Suspect]
     Dosage: UNK

REACTIONS (3)
  - MALAISE [None]
  - DRUG INEFFECTIVE [None]
  - VOMITING [None]
